APPROVED DRUG PRODUCT: TRIPROLIDINE HYDROCHLORIDE
Active Ingredient: TRIPROLIDINE HYDROCHLORIDE
Strength: 1.25MG/5ML
Dosage Form/Route: SYRUP;ORAL
Application: A087514 | Product #001
Applicant: PHARMACEUTICAL ASSOC INC DIV BEACH PRODUCTS
Approved: Feb 10, 1982 | RLD: No | RS: No | Type: DISCN